FAERS Safety Report 6888264-6 (Version None)
Quarter: 2010Q3

REPORT INFORMATION
  Report Type: 
  Country: None (occurrence: None)
  Receive Date: 20100730
  Receipt Date: 20100722
  Transmission Date: 20110219
  Serious: Yes (Hospitalization)
  Sender: FDA-Public Use
  Company Number: FR-BAXTER-2010BH019971

PATIENT
  Age: 35 Month
  Sex: Female

DRUGS (6)
  1. HOLOXAN BAXTER [Suspect]
     Indication: RHABDOMYOSARCOMA
     Route: 042
     Dates: start: 20100410, end: 20100410
  2. HOLOXAN BAXTER [Suspect]
     Route: 042
     Dates: start: 20100430, end: 20100430
  3. HOLOXAN BAXTER [Suspect]
     Route: 042
     Dates: start: 20100528, end: 20100528
  4. DOXORUBICIN HCL [Suspect]
     Indication: RHABDOMYOSARCOMA
     Route: 042
     Dates: start: 20100410, end: 20100410
  5. DOXORUBICIN HCL [Suspect]
     Route: 042
     Dates: start: 20100430, end: 20100430
  6. DOXORUBICIN HCL [Suspect]
     Route: 042
     Dates: start: 20100528, end: 20100528

REACTIONS (2)
  - INFUSION SITE ABSCESS [None]
  - INFUSION SITE EXTRAVASATION [None]
